FAERS Safety Report 12501211 (Version 1)
Quarter: 2016Q2

REPORT INFORMATION
  Report Type: Report from Study
  Country: MX (occurrence: MX)
  Receive Date: 20160627
  Receipt Date: 20160627
  Transmission Date: 20160815
  Serious: Yes (Other)
  Sender: FDA-Public Use
  Company Number: PHHY2016MX071393

PATIENT
  Sex: Male

DRUGS (2)
  1. VALSARTAN. [Suspect]
     Active Substance: VALSARTAN
     Indication: HYPERTENSION
     Route: 065
  2. DIOVAN [Suspect]
     Active Substance: VALSARTAN
     Indication: HYPERTENSION
     Dosage: 2 DF, QD
     Route: 065

REACTIONS (5)
  - Inappropriate schedule of drug administration [Recovered/Resolved]
  - Blood pressure increased [Unknown]
  - Cardiac failure [Not Recovered/Not Resolved]
  - Hypertensive crisis [Unknown]
  - Blood pressure fluctuation [Unknown]
